FAERS Safety Report 7604251-4 (Version None)
Quarter: 2011Q3

REPORT INFORMATION
  Report Type: 
  Country: None (occurrence: None)
  Receive Date: 20110712
  Receipt Date: 20110706
  Transmission Date: 20111222
  Serious: Yes (Death, Hospitalization)
  Sender: FDA-Public Use
  Company Number: GB-ASTRAZENECA-2011SE39584

PATIENT
  Age: 26361 Day
  Sex: Female
  Weight: 60 kg

DRUGS (6)
  1. AMLODIPINE [Concomitant]
     Route: 048
     Dates: start: 20110315
  2. GEMCITABINE [Suspect]
     Indication: TRANSITIONAL CELL CARCINOMA
     Dosage: 1200 MG ON DAY 1 AND DAY 8 OF EVERY 21 DAYS CYCLE
     Route: 042
     Dates: start: 20110208, end: 20110518
  3. RAMIPRIL [Concomitant]
     Route: 048
     Dates: start: 20060101
  4. SIMVASTATIN [Concomitant]
     Route: 048
     Dates: start: 20060101
  5. VANDETANIB [Suspect]
     Indication: TRANSITIONAL CELL CARCINOMA
     Route: 048
     Dates: start: 20110208, end: 20110525
  6. CARBOPLATIN [Suspect]
     Indication: TRANSITIONAL CELL CARCINOMA
     Route: 042
     Dates: start: 20110208, end: 20110511

REACTIONS (1)
  - BRONCHOPULMONARY ASPERGILLOSIS [None]
